FAERS Safety Report 10046075 (Version 1)
Quarter: 2014Q1

REPORT INFORMATION
  Report Type: Spontaneous
  Country: US (occurrence: None)
  Receive Date: 20140326
  Receipt Date: 20140326
  Transmission Date: 20141002
  Serious: Yes (Hospitalization)
  Sender: FDA-Public Use
  Company Number: FK201400755

PATIENT
  Sex: Female
  Weight: 14.8 kg

DRUGS (1)
  1. VINBLASTINE SULFATE [Suspect]
     Indication: LANGERHANS^ CELL HISTIOCYTOSIS
     Dates: start: 20131002

REACTIONS (4)
  - Hyponatraemia [None]
  - Ileus paralytic [None]
  - Hypertension [None]
  - Alopecia [None]
